FAERS Safety Report 22103357 (Version 1)
Quarter: 2023Q1

REPORT INFORMATION
  Report Type: Spontaneous
  Country: US (occurrence: US)
  Receive Date: 20230316
  Receipt Date: 20230316
  Transmission Date: 20230417
  Serious: No
  Sender: FDA-Public Use
  Company Number: US-PFIZER INC-202300107984

PATIENT
  Age: 66 Year
  Sex: Male
  Weight: 92.53 kg

DRUGS (3)
  1. PAXLOVID [Suspect]
     Active Substance: NIRMATRELVIR\RITONAVIR
     Indication: COVID-19 treatment
     Dosage: UNK
     Dates: start: 2023, end: 2023
  2. OLMESARTAN [Concomitant]
     Active Substance: OLMESARTAN
     Indication: Hypertension
     Dosage: 40 MG 1X/DAY (MORNING USUALLY AROUND 6 O^CLOCK)
  3. TESTOSTERONE [Concomitant]
     Active Substance: TESTOSTERONE
     Indication: Blood testosterone decreased
     Dosage: TOTAL OF 0.7 CC^S A WEEK, SPLIT AFTER 2 DOSES WEEKLY

REACTIONS (4)
  - Eye pain [Unknown]
  - Vision blurred [Unknown]
  - Photophobia [Unknown]
  - Blood pressure systolic increased [Unknown]

NARRATIVE: CASE EVENT DATE: 20230306
